FAERS Safety Report 5031190-8 (Version None)
Quarter: 2006Q2

REPORT INFORMATION
  Report Type: 
  Country: None (occurrence: None)
  Receive Date: 20060615
  Receipt Date: 20060609
  Transmission Date: 20061013
  Serious: Yes (Death, Life-Threatening)
  Sender: FDA-Public Use
  Company Number: 200611818GDS

PATIENT
  Age: 78 Year
  Sex: Female

DRUGS (10)
  1. AVELOX [Suspect]
     Indication: PNEUMONIA
     Dosage: 400 MG ONCE INTRAVENOUS
     Route: 042
     Dates: start: 20060130
  2. AMIODARONE HCL [Suspect]
     Indication: ATRIAL FIBRILLATION
     Dosage: 200 MG TOTAL DAILY ORAL
     Route: 048
  3. ZITHROMAX [Suspect]
     Indication: PNEUMONIA
     Dosage: ONCE INTRAVENOUS
     Route: 042
     Dates: start: 20060130
  4. ALDACTAZIDE [Concomitant]
  5. BIZOPROLOL [Concomitant]
  6. CRESTOR [Concomitant]
  7. LEVOTHYROXINE SODIUM [Concomitant]
  8. METFORMIN [Concomitant]
  9. VALSARTAN [Concomitant]
  10. WARFARIN SODIUM [Concomitant]

REACTIONS (10)
  - ALANINE AMINOTRANSFERASE INCREASED [None]
  - ASPARTATE AMINOTRANSFERASE INCREASED [None]
  - ASTHMA [None]
  - BLOOD ALKALINE PHOSPHATASE INCREASED [None]
  - BLOOD BILIRUBIN INCREASED [None]
  - BLOOD CREATININE INCREASED [None]
  - BLOOD UREA INCREASED [None]
  - CARDIAC ARREST [None]
  - ELECTROCARDIOGRAM QT PROLONGED [None]
  - PNEUMONIA [None]
